FAERS Safety Report 12849281 (Version 2)
Quarter: 2017Q1

REPORT INFORMATION
  Report Type: Report from Study
  Country: GB (occurrence: GB)
  Receive Date: 20161014
  Receipt Date: 20170121
  Transmission Date: 20170428
  Serious: Yes (Death, Hospitalization, Other)
  Sender: FDA-Public Use
  Company Number: GB-AMGEN-GBRSL2016139241

PATIENT
  Age: 91 Year
  Sex: Male

DRUGS (1)
  1. ARANESP [Suspect]
     Active Substance: DARBEPOETIN ALFA
     Indication: PRODUCT USED FOR UNKNOWN INDICATION
     Dosage: 60 MUG, UNK
     Route: 065

REACTIONS (4)
  - General physical health deterioration [Unknown]
  - Dehydration [Unknown]
  - Death [Fatal]
  - Fall [Unknown]

NARRATIVE: CASE EVENT DATE: 201609
